FAERS Safety Report 16119114 (Version 1)
Quarter: 2019Q1

REPORT INFORMATION
  Report Type: Spontaneous
  Country: FR (occurrence: FR)
  Receive Date: 20190326
  Receipt Date: 20190326
  Transmission Date: 20190418
  Serious: Yes (Other)
  Sender: FDA-Public Use
  Company Number: FR-PFIZER INC-2019123964

PATIENT
  Age: 58 Year
  Sex: Male

DRUGS (6)
  1. BACTRIM [Suspect]
     Active Substance: SULFAMETHOXAZOLE\TRIMETHOPRIM
     Indication: LUNG DISORDER
     Dosage: 1600 MG, 1X/DAY
     Route: 042
     Dates: start: 20190109, end: 20190120
  2. SOLU-MEDROL [Suspect]
     Active Substance: METHYLPREDNISOLONE SODIUM SUCCINATE
     Indication: LUNG DISORDER
     Dosage: 2 MG/KG, 1X/DAY
     Route: 042
     Dates: start: 20190117
  3. TAZOCILLINE [Suspect]
     Active Substance: PIPERACILLIN SODIUM\TAZOBACTAM SODIUM
     Indication: LUNG DISORDER
     Dosage: UNK
     Route: 042
     Dates: start: 20190110
  4. ROVAMYCINE [SPIRAMYCIN ADEPATE] [Suspect]
     Active Substance: SPIRAMYCIN ADIPATE
     Indication: LUNG DISORDER
     Dosage: 3 DF, 1X/DAY
     Route: 042
     Dates: start: 20190109
  5. CANCIDAS [Concomitant]
     Active Substance: CASPOFUNGIN ACETATE
     Dosage: 70 MG, DAILY
     Route: 042
     Dates: start: 20190117
  6. CANCIDAS [Concomitant]
     Active Substance: CASPOFUNGIN ACETATE
     Dosage: 50 MG, DAILY
     Route: 042
     Dates: end: 20190118

REACTIONS (3)
  - Pancytopenia [Recovering/Resolving]
  - Skin reaction [Recovered/Resolved]
  - Blood creatinine increased [Recovered/Resolved]

NARRATIVE: CASE EVENT DATE: 20190120
